FAERS Safety Report 7765169-X (Version None)
Quarter: 2011Q3

REPORT INFORMATION
  Report Type: 
  Country: None (occurrence: None)
  Receive Date: 20110901
  Receipt Date: 20110421
  Transmission Date: 20111222
  Serious: Yes (Hospitalization)
  Sender: FDA-Public Use
  Company Number: 277838USA

PATIENT
  Age: 71 Year
  Sex: Male

DRUGS (17)
  1. ZOLPIDEM TARTRATE [Suspect]
  2. ALPRAZOLAM [Suspect]
  3. QUINAPRIL HCL [Concomitant]
  4. FUROSEMIDE [Concomitant]
  5. ACETAZOLAMIDE [Suspect]
  6. ALFUZOSIN HYDROCHLORIDE [Suspect]
  7. DUTASTERIDE [Concomitant]
  8. METOPROLOL TARTRATE [Concomitant]
  9. MEMANTINE HYDROCHLORIDE [Suspect]
  10. ERGOCALCIFEROL [Concomitant]
  11. DILTIAZEM HCL [Concomitant]
  12. POTASSIUM CHLORIDE [Suspect]
  13. EZETIMIBE [Concomitant]
  14. DONEPEZIL HYDROCHLORIDE [Suspect]
  15. AMLODIPINE [Suspect]
  16. METOPROLOL SUCCINATE [Suspect]
  17. ALPRAZOLAM [Concomitant]

REACTIONS (17)
  - INSOMNIA [None]
  - ASTHENIA [None]
  - ABASIA [None]
  - NAUSEA [None]
  - MALAISE [None]
  - RHINORRHOEA [None]
  - MUSCULAR WEAKNESS [None]
  - DRY MOUTH [None]
  - DRUG INTERACTION [None]
  - DIZZINESS [None]
  - SOMNOLENCE [None]
  - GAIT DISTURBANCE [None]
  - PNEUMONIA BACTERIAL [None]
  - READING DISORDER [None]
  - FATIGUE [None]
  - DYSPNOEA [None]
  - ABDOMINAL DISCOMFORT [None]
